FAERS Safety Report 20243795 (Version 15)
Quarter: 2023Q1

REPORT INFORMATION
  Report Type: Spontaneous
  Country: CA (occurrence: CA)
  Receive Date: 20211228
  Receipt Date: 20230114
  Transmission Date: 20230418
  Serious: Yes (Hospitalization, Other)
  Sender: FDA-Public Use
  Company Number: CA-CELLTRION INC.-2021CA017830

PATIENT

DRUGS (8)
  1. INFLECTRA [Suspect]
     Active Substance: INFLIXIMAB-DYYB
     Indication: Crohn^s disease
     Dosage: 275 MG AT WEEK 0, 2 AND 6 THEN EVERY 8 WEEKS. ON HOLD
     Route: 042
     Dates: start: 20211014, end: 20211102
  2. INFLECTRA [Suspect]
     Active Substance: INFLIXIMAB-DYYB
     Dosage: 275 MG AT WEEK 0, 2 AND 6 THEN EVERY 8 WEEKS. ON HOLD
     Route: 042
     Dates: start: 20211102
  3. INFLECTRA [Suspect]
     Active Substance: INFLIXIMAB-DYYB
     Dosage: 350 MG (5 MG/ KG) DOSAGE INFO: UNKNOWN (PENDING SIGNED RX YET TO RECEIVE. NOT YET STARTED.)
     Route: 042
  4. INFLECTRA [Suspect]
     Active Substance: INFLIXIMAB-DYYB
     Dosage: 350 MG, Q 0, 2 AND 6 THEN EVERY 8 WEEKS (REINDUCTION REGIMEN)
     Route: 042
     Dates: start: 20221104
  5. INFLECTRA [Suspect]
     Active Substance: INFLIXIMAB-DYYB
     Dosage: 350 MG, Q 0, 2 AND 6 THEN EVERY 8 WEEKS (REINDUCTION REGIMEN)
     Route: 042
     Dates: start: 20221104, end: 202211
  6. INFLECTRA [Suspect]
     Active Substance: INFLIXIMAB-DYYB
     Dosage: 350 MG, Q 0, 2 AND 6 THEN EVERY 8 WEEKS (REINDUCTION REGIMEN)
     Route: 042
     Dates: start: 20221118, end: 2022
  7. PREDNISONE [Concomitant]
     Active Substance: PREDNISONE
     Dosage: UNK
     Dates: start: 20211129
  8. PREDNISONE [Concomitant]
     Active Substance: PREDNISONE
     Dosage: 1 DF, DOSAGE UNKNOWN
     Route: 065

REACTIONS (29)
  - Large intestine infection [Unknown]
  - Clostridium difficile infection [Not Recovered/Not Resolved]
  - Loss of consciousness [Recovered/Resolved]
  - Condition aggravated [Recovering/Resolving]
  - Off label use [Unknown]
  - Product administration interrupted [Unknown]
  - Fistula [Not Recovered/Not Resolved]
  - Frequent bowel movements [Not Recovered/Not Resolved]
  - Malaise [Not Recovered/Not Resolved]
  - Pain [Recovered/Resolved]
  - Abscess [Unknown]
  - Inflammation [Not Recovered/Not Resolved]
  - Weight increased [Not Recovered/Not Resolved]
  - Nausea [Not Recovered/Not Resolved]
  - Dizziness [Recovered/Resolved]
  - Fall [Unknown]
  - Hot flush [Recovered/Resolved]
  - Night sweats [Not Recovered/Not Resolved]
  - Chills [Unknown]
  - Arthralgia [Unknown]
  - Rash pruritic [Not Recovered/Not Resolved]
  - Back pain [Recovered/Resolved]
  - Abdominal pain upper [Recovered/Resolved]
  - Sweat discolouration [Recovered/Resolved]
  - Hyperhidrosis [Recovered/Resolved]
  - Dizziness [Recovered/Resolved]
  - Nasopharyngitis [Recovered/Resolved]
  - Infusion related reaction [Unknown]
  - Drug specific antibody [Unknown]

NARRATIVE: CASE EVENT DATE: 20221014
